FAERS Safety Report 11163001 (Version 1)
Quarter: 2015Q2

REPORT INFORMATION
  Report Type: Spontaneous
  Country: US (occurrence: None)
  Receive Date: 20150603
  Receipt Date: 20150603
  Transmission Date: 20150821
  Serious: Yes (Other)
  Sender: FDA-Public Use
  Company Number: None

PATIENT
  Age: 55 Year
  Sex: Female

DRUGS (1)
  1. REBIF [Suspect]
     Active Substance: INTERFERON BETA-1A
     Indication: MULTIPLE SCLEROSIS
     Route: 058
     Dates: start: 20150530

REACTIONS (6)
  - Muscle spasms [None]
  - Sensory loss [None]
  - Abasia [None]
  - Migraine [None]
  - Thyroid disorder [None]
  - Swelling [None]

NARRATIVE: CASE EVENT DATE: 20150530
